FAERS Safety Report 7901320-6 (Version None)
Quarter: 2011Q4

REPORT INFORMATION
  Report Type: 
  Country: None (occurrence: None)
  Receive Date: 20111108
  Receipt Date: 20111103
  Transmission Date: 20120403
  Serious: Yes (Death, Other)
  Sender: FDA-Public Use
  Company Number: PHHY2011CN97033

PATIENT
  Sex: Male
  Weight: 60 kg

DRUGS (1)
  1. GLEEVEC [Suspect]
     Indication: GASTROINTESTINAL STROMAL TUMOUR
     Dosage: 400 MG, DAILY
     Route: 048
     Dates: start: 20110101

REACTIONS (5)
  - MULTI-ORGAN FAILURE [None]
  - NEOPLASM MALIGNANT [None]
  - ASTHENIA [None]
  - GASTROINTESTINAL STROMAL TUMOUR [None]
  - BLOOD DISORDER [None]
